FAERS Safety Report 4528261-9 (Version None)
Quarter: 2004Q4

REPORT INFORMATION
  Report Type: 
  Country: None (occurrence: None)
  Receive Date: 20041130
  Receipt Date: 20040827
  Transmission Date: 20050328
  Serious: No
  Sender: FDA-Public Use
  Company Number: WAES 0306USA01639

PATIENT
  Age: 84 Year
  Sex: Female
  Weight: 77.5651 kg

DRUGS (8)
  1. ZETIA [Suspect]
     Indication: BLOOD CHOLESTEROL INCREASED
     Dosage: 10 MG DAILY PO
     Route: 048
     Dates: start: 20030609, end: 20030101
  2. ZETIA [Suspect]
     Indication: HYPERLIPIDAEMIA
     Dosage: 10 MG DAILY PO
     Route: 048
     Dates: start: 20030609, end: 20030101
  3. CARTIA (DILTKIAZEM HYDROCHLORIDE) [Concomitant]
  4. LANOXIN [Concomitant]
  5. PRINIVIL [Concomitant]
  6. XALATAN [Concomitant]
  7. METOPROLOL [Concomitant]
  8. WARFARIN SODIUM [Concomitant]

REACTIONS (7)
  - ABNORMAL DREAMS [None]
  - ADVERSE EVENT [None]
  - FLATULENCE [None]
  - MEDICATION ERROR [None]
  - MYALGIA [None]
  - RHINORRHOEA [None]
  - VISION BLURRED [None]
